FAERS Safety Report 14651465 (Version 2)
Quarter: 2018Q2

REPORT INFORMATION
  Report Type: Report from Study
  Country: FR (occurrence: FR)
  Receive Date: 20180316
  Receipt Date: 20180427
  Transmission Date: 20180711
  Serious: No
  Sender: FDA-Public Use
  Company Number: PHHY2017FR035071

PATIENT
  Age: 18 Year
  Sex: Female

DRUGS (1)
  1. GILENYA [Suspect]
     Active Substance: FINGOLIMOD HYDROCHLORIDE
     Indication: MULTIPLE SCLEROSIS
     Dosage: UNK, QD
     Route: 048
     Dates: start: 20150609

REACTIONS (16)
  - Malaise [Recovered/Resolved]
  - Vomiting [Recovered/Resolved]
  - Conjunctivitis [Recovered/Resolved]
  - Sinusitis [Unknown]
  - Discomfort [Recovered/Resolved]
  - Dry eye [Recovered/Resolved]
  - White blood cell count decreased [Unknown]
  - Anxiety [Recovered/Resolved]
  - Gastrointestinal pain [Recovered/Resolved]
  - Cough [Unknown]
  - Corneal disorder [Unknown]
  - Lymphopenia [Recovered/Resolved]
  - Sinusitis [Recovered/Resolved]
  - Dysphagia [Unknown]
  - Headache [Recovered/Resolved]
  - Swollen tongue [Unknown]

NARRATIVE: CASE EVENT DATE: 20150704
